FAERS Safety Report 25813935 (Version 1)
Quarter: 2025Q3

REPORT INFORMATION
  Report Type: Spontaneous
  Country: CA (occurrence: CA)
  Receive Date: 20250917
  Receipt Date: 20250917
  Transmission Date: 20251021
  Serious: Yes (Hospitalization)
  Sender: BAYER HEALTHCARE PHARMACEUTICALS INC.
  Company Number: CA-BAYER-2025A123090

PATIENT
  Age: 41 Year
  Sex: Female
  Weight: 94 kg

DRUGS (28)
  1. CIPRO [Suspect]
     Active Substance: CIPROFLOXACIN HYDROCHLORIDE
     Indication: Transplant
     Dosage: 500 MG, BID
     Route: 048
  2. CIPRO [Suspect]
     Active Substance: CIPROFLOXACIN HYDROCHLORIDE
     Indication: Pyelonephritis
  3. PIPERACILLIN SODIUM\TAZOBACTAM SODIUM [Suspect]
     Active Substance: PIPERACILLIN SODIUM\TAZOBACTAM SODIUM
     Indication: Transplant
     Dosage: 3 G, QID
     Route: 042
  4. PIPERACILLIN SODIUM\TAZOBACTAM SODIUM [Suspect]
     Active Substance: PIPERACILLIN SODIUM\TAZOBACTAM SODIUM
     Indication: Pyelonephritis
  5. CEFTAZIDIME [Suspect]
     Active Substance: CEFTAZIDIME
     Indication: Transplant
     Dosage: 2 G, BID
     Route: 042
  6. CEFTAZIDIME [Suspect]
     Active Substance: CEFTAZIDIME
     Indication: Pyelonephritis
  7. CEFIXIME [Suspect]
     Active Substance: CEFIXIME
     Indication: Transplant
     Dosage: 400 MG, QD
     Route: 048
  8. CEFIXIME [Suspect]
     Active Substance: CEFIXIME
     Indication: Pyelonephritis
  9. AMPICILLIN [Suspect]
     Active Substance: AMPICILLIN
     Indication: Transplant
     Dosage: 2 G, QID
     Route: 042
  10. AMPICILLIN [Suspect]
     Active Substance: AMPICILLIN
     Indication: Pyelonephritis
  11. ALFACALCIDOL [Concomitant]
     Active Substance: ALFACALCIDOL
  12. AMLODIPINE [Concomitant]
     Active Substance: AMLODIPINE BESYLATE
     Route: 048
  13. ATORVASTATIN [Concomitant]
     Active Substance: ATORVASTATIN
  14. BISOPROLOL [Concomitant]
     Active Substance: BISOPROLOL
     Route: 048
  15. CALCIUM CARBONATE [Concomitant]
     Active Substance: CALCIUM CARBONATE
     Route: 048
  16. INSULIN LISPRO [Concomitant]
     Active Substance: INSULIN LISPRO
  17. INSULIN NOS [Concomitant]
     Active Substance: INSULIN NOS
  18. CHOLECALCIFEROL [Concomitant]
     Active Substance: CHOLECALCIFEROL
  19. GLUCAGON [Concomitant]
     Active Substance: GLUCAGON
  20. IRBESARTAN [Concomitant]
     Active Substance: IRBESARTAN
     Route: 048
  21. METFORMIN [Concomitant]
     Active Substance: METFORMIN HYDROCHLORIDE
     Route: 048
  22. LEVONORGESTREL [Concomitant]
     Active Substance: LEVONORGESTREL
  23. MYCOPHENOLATE MOFETIL [Concomitant]
     Active Substance: MYCOPHENOLATE MOFETIL
  24. PREDNISONE [Concomitant]
     Active Substance: PREDNISONE
  25. SEMAGLUTIDE [Concomitant]
     Active Substance: SEMAGLUTIDE
  26. SERTRALINE [Concomitant]
     Active Substance: SERTRALINE HYDROCHLORIDE
     Route: 048
  27. TACROLIMUS [Concomitant]
     Active Substance: TACROLIMUS
     Route: 048
  28. ZOPICLONE [Concomitant]
     Active Substance: ZOPICLONE
     Route: 048

REACTIONS (2)
  - Clostridium difficile colitis [Recovering/Resolving]
  - Sepsis [Recovering/Resolving]
